FAERS Safety Report 7132826-8 (Version None)
Quarter: 2010Q4

REPORT INFORMATION
  Report Type: 
  Country: None (occurrence: None)
  Receive Date: 20101117
  Receipt Date: 20101104
  Transmission Date: 20110411
  Serious: Yes (Hospitalization)
  Sender: FDA-Public Use
  Company Number: KV201000334

PATIENT
  Sex: Female

DRUGS (1)
  1. MORPHINE SULFATE [Suspect]
     Indication: BACK PAIN
     Dosage: 60 MG (4 TABLETS) DAILY, ORAL
     Route: 048

REACTIONS (4)
  - GASTRIC DISORDER [None]
  - OVERDOSE [None]
  - VOMITING [None]
  - WITHDRAWAL SYNDROME [None]
